FAERS Safety Report 14244195 (Version 2)
Quarter: 2018Q1

REPORT INFORMATION
  Report Type: Spontaneous
  Country: JP (occurrence: JP)
  Receive Date: 20171201
  Receipt Date: 20180101
  Transmission Date: 20180508
  Serious: Yes (Other)
  Sender: FDA-Public Use
  Company Number: JP-ASTELLAS-2017US050535

PATIENT
  Age: 45 Year
  Sex: Male

DRUGS (2)
  1. AMPHOTERICIN B, LIPOSOME [Suspect]
     Active Substance: AMPHOTERICIN B
     Indication: MENINGITIS CRYPTOCOCCAL
     Dosage: UNK, UNKNOWN FREQ.
     Route: 041
  2. FLUCYTOSINE. [Suspect]
     Active Substance: FLUCYTOSINE
     Indication: MENINGITIS CRYPTOCOCCAL
     Dosage: UNK, UNKNOWN FREQ.
     Route: 048

REACTIONS (4)
  - Pyrexia [Recovering/Resolving]
  - Immune reconstitution inflammatory syndrome [Unknown]
  - Vomiting [Unknown]
  - Headache [Recovering/Resolving]
